FAERS Safety Report 18343517 (Version 2)
Quarter: 2020Q4

REPORT INFORMATION
  Report Type: Spontaneous
  Country: US (occurrence: US)
  Receive Date: 20201005
  Receipt Date: 20201124
  Transmission Date: 20210113
  Serious: No
  Sender: FDA-Public Use
  Company Number: US-PFIZER INC-2020381546

PATIENT
  Age: 75 Year
  Sex: Female

DRUGS (1)
  1. IBRANCE [Suspect]
     Active Substance: PALBOCICLIB
     Indication: METASTATIC NEOPLASM
     Dosage: 100 MG, CYCLIC (EVERYDAY FOR 21 DAYS ON/7OFF)
     Route: 048
     Dates: start: 20180111

REACTIONS (1)
  - Dry skin [Not Recovered/Not Resolved]
